FAERS Safety Report 7809456-5 (Version None)
Quarter: 2011Q4

REPORT INFORMATION
  Report Type: 
  Country: None (occurrence: None)
  Receive Date: 20111012
  Receipt Date: 20110927
  Transmission Date: 20120403
  Serious: Yes (Other)
  Sender: FDA-Public Use
  Company Number: PHEH2011US05513

PATIENT
  Age: 47 Year
  Sex: Male
  Weight: 74 kg

DRUGS (5)
  1. SANDIMMUNE [Suspect]
     Indication: RENAL AND PANCREAS TRANSPLANT
     Dosage: 300 MG, DAILY
     Dates: start: 19910517, end: 20070601
  2. ATENOLOL [Concomitant]
     Indication: HYPERTENSION
     Dosage: 25 MG,
     Route: 048
  3. PREDNISONE [Concomitant]
     Indication: RENAL AND PANCREAS TRANSPLANT
     Dosage: 5 MG/ 5ML, DAILY
  4. TEMAZEPAM [Concomitant]
     Indication: INSOMNIA
     Dosage: 30 MG, AS NEEDED
  5. LAMICTAL [Concomitant]
     Indication: BIPOLAR DISORDER
     Dosage: 300 MG, DAILY
     Route: 048

REACTIONS (3)
  - SKIN CANCER [None]
  - INSOMNIA [None]
  - BIPOLAR DISORDER [None]
